FAERS Safety Report 20398880 (Version 1)
Quarter: 2022Q1

REPORT INFORMATION
  Report Type: Spontaneous
  Country: DE (occurrence: DE)
  Receive Date: 20220131
  Receipt Date: 20220131
  Transmission Date: 20220423
  Serious: Yes (Other)
  Sender: FDA-Public Use
  Company Number: DE-ADVANZ PHARMA-202201000377

PATIENT

DRUGS (2)
  1. HYDROXYCHLOROQUINE [Suspect]
     Active Substance: HYDROXYCHLOROQUINE
     Indication: Systemic lupus erythematosus
     Dosage: UNK (QUENSYL)
     Route: 065
     Dates: end: 201801
  2. BENLYSTA [Suspect]
     Active Substance: BELIMUMAB
     Indication: Product used for unknown indication
     Dosage: UNK
     Route: 065

REACTIONS (8)
  - Cerebrovascular accident [Unknown]
  - Deafness [Unknown]
  - Cardiac disorder [Unknown]
  - General physical health deterioration [Unknown]
  - Malaise [Unknown]
  - Hypoaesthesia [Unknown]
  - Toxicity to various agents [Unknown]
  - Visual impairment [Unknown]

NARRATIVE: CASE EVENT DATE: 20160101
